FAERS Safety Report 9284490 (Version 1)
Quarter: 2013Q2

REPORT INFORMATION
  Report Type: Spontaneous
  Country: ES (occurrence: ES)
  Receive Date: 20130510
  Receipt Date: 20130510
  Transmission Date: 20140414
  Serious: Yes (Hospitalization, Other)
  Sender: FDA-Public Use
  Company Number: ES-ROXANE LABORATORIES, INC.-2013-RO-00708RO

PATIENT
  Age: 41 Year
  Sex: Male

DRUGS (2)
  1. METHADONE [Suspect]
     Indication: DRUG WITHDRAWAL MAINTENANCE THERAPY
  2. HEROIN [Suspect]

REACTIONS (4)
  - Rhabdomyolysis [Unknown]
  - Renal failure acute [Recovered/Resolved]
  - Fall [Unknown]
  - Dehydration [Recovered/Resolved]
